FAERS Safety Report 21855798 (Version 6)
Quarter: 2024Q3

REPORT INFORMATION
  Report Type: Spontaneous
  Country: BR (occurrence: BR)
  Receive Date: 20230112
  Receipt Date: 20240921
  Transmission Date: 20241017
  Serious: Yes (Other)
  Sender: CELLTRION
  Company Number: BR-CELLTRION INC.-2023BR000211

PATIENT

DRUGS (20)
  1. INFLIXIMAB [Suspect]
     Active Substance: INFLIXIMAB
     Indication: Crohn^s disease
     Dosage: UNK
     Route: 042
     Dates: start: 20220621
  2. INFLIXIMAB [Suspect]
     Active Substance: INFLIXIMAB
     Indication: Arthritis enteropathic
     Dosage: SECOND INFUSION
     Route: 042
     Dates: start: 202208
  3. INFLIXIMAB [Suspect]
     Active Substance: INFLIXIMAB
     Indication: Rheumatoid arthritis
     Dosage: HAD ANOTHER INFUSION
     Route: 042
     Dates: start: 202209
  4. INFLIXIMAB [Suspect]
     Active Substance: INFLIXIMAB
     Indication: Intervertebral disc protrusion
     Dosage: FIFTH INFUSION
     Route: 042
     Dates: start: 20221101
  5. INFLIXIMAB [Suspect]
     Active Substance: INFLIXIMAB
     Dosage: 5 AMPOULES EVERY 6 WEEKS
     Route: 042
     Dates: start: 20230105
  6. INFLIXIMAB [Suspect]
     Active Substance: INFLIXIMAB
     Dosage: UNK
     Route: 042
     Dates: start: 20230717
  7. INFLIXIMAB [Suspect]
     Active Substance: INFLIXIMAB
     Dosage: 4 AMPOULES EVERY 8 WEEKS
     Route: 042
  8. INFLIXIMAB [Suspect]
     Active Substance: INFLIXIMAB
     Dosage: 4 AMPOULES EVERY 6 WEEKS
     Route: 042
     Dates: start: 20240603
  9. INFLIXIMAB [Suspect]
     Active Substance: INFLIXIMAB
     Dosage: 4 AMPOULES EVERY 8 WEEKS
     Route: 042
     Dates: start: 20240615
  10. INFLIXIMAB [Suspect]
     Active Substance: INFLIXIMAB
     Dosage: UNK
     Route: 042
     Dates: start: 202405
  11. INFLIXIMAB [Suspect]
     Active Substance: INFLIXIMAB
     Dosage: UNK
     Route: 042
     Dates: start: 202406
  12. INFLIXIMAB [Suspect]
     Active Substance: INFLIXIMAB
     Dosage: UNK
     Route: 042
     Dates: start: 202407
  13. HYDROCHLOROTHIAZIDE [Concomitant]
     Active Substance: HYDROCHLOROTHIAZIDE
     Indication: Hypertension
     Dosage: 2 PILLS A DAY
     Route: 048
     Dates: start: 2001
  14. APRESOLINE HYDROCHLORIDE [Concomitant]
     Active Substance: HYDRALAZINE HYDROCHLORIDE
     Indication: Hypertension
     Dosage: 6 PILLS A DAY
     Route: 048
     Dates: start: 2001
  15. NEBIVOLOL [Concomitant]
     Active Substance: NEBIVOLOL
     Indication: Hypertension
     Dosage: 2 PILLS A DAY
     Route: 048
     Dates: start: 2001
  16. LOSARTAN [Concomitant]
     Active Substance: LOSARTAN\LOSARTAN POTASSIUM
     Indication: Hypertension
     Dosage: 6 PILLS A DAY
     Route: 048
     Dates: start: 2001
  17. COVID-19 VACCINE [Concomitant]
     Dosage: SECOND BOOSTER DOSE OF COVID
     Dates: start: 202210
  18. ITRACONAZOLE [Concomitant]
     Active Substance: ITRACONAZOLE
     Indication: Histoplasmosis
     Dosage: 2 PILLS A DAY/STOP DATE: AFTER 2.5 YEARS
     Route: 048
     Dates: start: 20210924
  19. AMPHOTERICIN B [Concomitant]
     Active Substance: AMPHOTERICIN B
     Indication: Histoplasmosis
     Route: 065
  20. RINVOQ [Concomitant]
     Active Substance: UPADACITINIB
     Indication: Inflammation
     Dosage: UNK
     Route: 065
     Dates: start: 20240802

REACTIONS (25)
  - Histoplasmosis [Unknown]
  - COVID-19 [Recovered/Resolved]
  - Pneumonia [Unknown]
  - Intestinal obstruction [Unknown]
  - Immunodeficiency [Unknown]
  - Pain in extremity [Not Recovered/Not Resolved]
  - Pain in extremity [Not Recovered/Not Resolved]
  - Peripheral swelling [Recovering/Resolving]
  - Joint swelling [Unknown]
  - Effusion [Unknown]
  - Symptom recurrence [Unknown]
  - Atrophy [Unknown]
  - Bone pain [Unknown]
  - Hypopituitarism [Unknown]
  - Sacroiliitis [Unknown]
  - Arthritis [Not Recovered/Not Resolved]
  - Gait disturbance [Unknown]
  - Hypoaesthesia [Unknown]
  - Sinusitis [Unknown]
  - Drug effect less than expected [Unknown]
  - Therapy interrupted [Unknown]
  - Product availability issue [Unknown]
  - Intentional dose omission [Unknown]
  - Intentional product use issue [Unknown]
  - Intentional product use issue [Unknown]

NARRATIVE: CASE EVENT DATE: 20130101
